FAERS Safety Report 5107742-3 (Version None)
Quarter: 2006Q3

REPORT INFORMATION
  Report Type: 
  Country: None (occurrence: None)
  Receive Date: 20060914
  Receipt Date: 20060908
  Transmission Date: 20061208
  Serious: Yes (Life-Threatening, Other)
  Sender: FDA-Public Use
  Company Number: 2006087471

PATIENT
  Age: 79 Year
  Sex: Female
  Weight: 55 kg

DRUGS (7)
  1. LIPITOR [Suspect]
     Indication: HYPERCHOLESTEROLAEMIA
     Dosage: 5 MG, ORAL
     Route: 048
     Dates: start: 20030612, end: 20060710
  2. OLMETEC (OLMESARTAN) [Concomitant]
  3. OMEPRAZOLE [Concomitant]
  4. CALCIUM CARBONATE (CALCIUM CARBONATE) [Concomitant]
  5. OMEPRAZOLE [Concomitant]
  6. SENNOSIDE A+B (SENNOSIDE A+B) [Concomitant]
  7. VIT K CAP [Concomitant]

REACTIONS (6)
  - HAEMOGLOBIN DECREASED [None]
  - PETECHIAE [None]
  - PURPURA [None]
  - THROMBOCYTOPENIA [None]
  - TONGUE HAEMATOMA [None]
  - WHITE BLOOD CELL COUNT DECREASED [None]
